FAERS Safety Report 4987998-8 (Version None)
Quarter: 2006Q2

REPORT INFORMATION
  Report Type: 
  Country: None (occurrence: None)
  Receive Date: 20060426
  Receipt Date: 20060420
  Transmission Date: 20061013
  Serious: Yes (Hospitalization)
  Sender: FDA-Public Use
  Company Number: 2005168814

PATIENT
  Age: 89 Year
  Sex: Female

DRUGS (10)
  1. PREGABALIN (PREGABALIN) [Suspect]
     Indication: NEURALGIA
     Dosage: 150 MG (75 MG, 2 IN 1 D), ORAL
     Route: 048
     Dates: start: 20051103, end: 20051105
  2. MESALAMINE [Concomitant]
  3. DIGOXIN [Concomitant]
  4. CORDIPLAST (GLYCERYL TRINITRATE) [Concomitant]
  5. PAROXETINE (PAROXETINE) [Concomitant]
  6. ALL OTHER THERAPEUTIC PRODUCTS (ALL OTHER THERAPEUTIC PRODUCTS) [Concomitant]
  7. FUROSEMIDE [Concomitant]
  8. LEVOTHROID [Concomitant]
  9. CANDESARTAN (CANDESARTAN) [Concomitant]
  10. LANSOPRAZOLE [Concomitant]

REACTIONS (4)
  - COORDINATION ABNORMAL [None]
  - DEPRESSED LEVEL OF CONSCIOUSNESS [None]
  - DIZZINESS [None]
  - DYSARTHRIA [None]
